FAERS Safety Report 12622225 (Version 1)
Quarter: 2016Q3

REPORT INFORMATION
  Report Type: Spontaneous
  Country: US (occurrence: US)
  Receive Date: 20160804
  Receipt Date: 20160804
  Transmission Date: 20161109
  Serious: Yes (Hospitalization)
  Sender: FDA-Public Use
  Company Number: US-MYLANLABS-2016M1031771

PATIENT

DRUGS (1)
  1. CLONAZEPAM. [Suspect]
     Active Substance: CLONAZEPAM
     Dosage: 2MG; 15 PILLS
     Route: 065

REACTIONS (3)
  - Overdose [Recovering/Resolving]
  - Glucocorticoid deficiency [Unknown]
  - Hypotension [Recovered/Resolved]
